FAERS Safety Report 7773965-8 (Version None)
Quarter: 2011Q3

REPORT INFORMATION
  Report Type: 
  Country: None (occurrence: None)
  Receive Date: 20110923
  Receipt Date: 20110912
  Transmission Date: 20111222
  Serious: Yes (Hospitalization)
  Sender: FDA-Public Use
  Company Number: JP-JNJFOC-20070105621

PATIENT
  Sex: Female
  Weight: 46 kg

DRUGS (11)
  1. REMICADE [Suspect]
     Indication: RHEUMATOID ARTHRITIS
     Route: 042
     Dates: start: 20060801
  2. REMICADE [Suspect]
     Route: 042
     Dates: start: 20061106
  3. REMICADE [Suspect]
     Route: 042
     Dates: start: 20061231
  4. FOLIC ACID [Concomitant]
     Indication: PROPHYLAXIS
     Route: 048
     Dates: end: 20061218
  5. PREDNISOLONE [Concomitant]
     Indication: RHEUMATOID ARTHRITIS
     Route: 048
     Dates: start: 20061218
  6. REMICADE [Suspect]
     Route: 042
     Dates: start: 20060911
  7. SELBEX [Concomitant]
     Indication: GASTRITIS
     Route: 048
  8. REMICADE [Suspect]
     Route: 042
     Dates: start: 20060815
  9. TAKA-DIASTASE [Concomitant]
     Route: 030
     Dates: start: 20070302
  10. RHEUMATREX [Suspect]
     Indication: RHEUMATOID ARTHRITIS
     Route: 048
     Dates: end: 20061218
  11. SIMVASTATIN [Concomitant]
     Indication: HYPERLIPIDAEMIA
     Route: 048

REACTIONS (1)
  - DISSEMINATED TUBERCULOSIS [None]
